FAERS Safety Report 8838744 (Version 2)
Quarter: 2012Q4

REPORT INFORMATION
  Report Type: 
  Country: US (occurrence: US)
  Receive Date: 20121012
  Receipt Date: 20121023
  Transmission Date: 20130627
  Serious: Yes (Life-Threatening, Hospitalization, Other)
  Sender: FDA-Public Use
  Company Number: US-009507513-2011SP048230

PATIENT

DRUGS (20)
  1. NUVARING [Suspect]
     Indication: CONTRACEPTION
     Dosage: 1 DF, UNK
     Route: 067
     Dates: start: 20100913, end: 20101103
  2. NUVARING [Suspect]
     Indication: VAGINAL HAEMORRHAGE
  3. SEROQUEL [Suspect]
     Indication: BIPOLAR DISORDER
     Dosage: 300 mg, qpm
     Route: 048
     Dates: end: 201009
  4. SEROQUEL [Suspect]
     Dosage: 400 mg, qpm
     Route: 048
     Dates: start: 201009, end: 201009
  5. SEROQUEL [Suspect]
     Dosage: 300 mg, qpm
     Route: 048
     Dates: start: 201009, end: 201011
  6. SEROQUEL [Suspect]
     Dosage: 400 mg, qpm
     Route: 048
     Dates: start: 201011
  7. MORPHINE [Suspect]
     Indication: PAIN
     Dates: start: 201011, end: 201011
  8. ASMANEX [Concomitant]
     Indication: CHRONIC OBSTRUCTIVE PULMONARY DISEASE
     Dosage: 1 PUFF EVERY BEDTIME
     Route: 055
     Dates: start: 2004
  9. SPIRIVA [Concomitant]
     Indication: CHRONIC OBSTRUCTIVE PULMONARY DISEASE
     Dosage: HANDIHALER; 1 PUFF DAILY
     Route: 055
     Dates: start: 2004
  10. FENTANYL [Concomitant]
     Indication: FIBROMYALGIA
     Dosage: EVERY 72 HOURS
     Route: 062
  11. NIASPAN [Concomitant]
     Indication: HIGH DENSITY LIPOPROTEIN DECREASED
     Dosage: 1000 mg, hs
     Route: 048
  12. WELLBUTRIN [Concomitant]
     Indication: BIPOLAR DISORDER
     Dosage: 522 mg, qam
     Route: 048
  13. MIRAPEX [Concomitant]
     Dosage: 0.25 mg, hs
     Route: 048
  14. MK-9384 [Concomitant]
     Dosage: 1-2 TABLETS QID PRN
     Route: 048
  15. LUNESTA [Concomitant]
     Dosage: 2 mg, hs
     Route: 048
  16. DESVENLAFAXINE SUCCINATE [Concomitant]
     Indication: BIPOLAR DISORDER
     Dosage: 100 mg, QD
     Route: 048
  17. CORTISPORIN OTIC [Concomitant]
     Dosage: 1%/5MG/10,000 U; 4 DROPS IN AFFECTED EARS QID
     Route: 001
  18. MAGNESIUM (UNSPECIFIED) [Concomitant]
  19. POTASSIUM (UNSPECIFIED) [Concomitant]
  20. TYLENOL WITH CODEINE #3 [Concomitant]
     Dosage: 300MG/30 MG; TAKE 1-2 QID PRN
     Route: 048

REACTIONS (18)
  - Suicide attempt [Recovered/Resolved]
  - Overdose [Recovered/Resolved]
  - Pneumonia [Unknown]
  - Musculoskeletal pain [Unknown]
  - Flank pain [Unknown]
  - Oedema peripheral [Unknown]
  - Pain in extremity [Unknown]
  - Pulmonary embolism [Unknown]
  - Bipolar disorder [Unknown]
  - Hypersomnia [Unknown]
  - Drug intolerance [Unknown]
  - Chills [Unknown]
  - Diarrhoea [Unknown]
  - Vulvovaginitis [Unknown]
  - Constipation [Recovered/Resolved]
  - Off label use [Unknown]
  - Gastrooesophageal reflux disease [Unknown]
  - Presyncope [Unknown]
